FAERS Safety Report 14373143 (Version 1)
Quarter: 2018Q1

REPORT INFORMATION
  Report Type: Spontaneous
  Country: US (occurrence: US)
  Receive Date: 20180109
  Receipt Date: 20180109
  Transmission Date: 20180509
  Serious: No
  Sender: FDA-Public Use
  Company Number: None

PATIENT
  Sex: Female

DRUGS (2)
  1. IBRANCE [Suspect]
     Active Substance: PALBOCICLIB
     Indication: BREAST CANCER FEMALE
     Dosage: 100MG ONCE DAILY FOR 21DAYS OF A?28 DAY CYCLE DAILY ORALLY ?
     Route: 048
     Dates: start: 20170808
  2. LETROZOLE 2.5MG ACCORD [Suspect]
     Active Substance: LETROZOLE
     Indication: BREAST CANCER FEMALE
     Route: 048
     Dates: start: 20170125

REACTIONS (1)
  - Full blood count decreased [None]
